FAERS Safety Report 11917220 (Version 2)
Quarter: 2016Q1

REPORT INFORMATION
  Report Type: Spontaneous
  Country: US (occurrence: US)
  Receive Date: 20160114
  Receipt Date: 20160226
  Transmission Date: 20160526
  Serious: Yes (Other)
  Sender: FDA-Public Use
  Company Number: US-PFIZER INC-2016008542

PATIENT
  Age: 66 Year
  Sex: Female

DRUGS (1)
  1. RAPAMUNE [Suspect]
     Active Substance: SIROLIMUS
     Indication: PROPHYLAXIS AGAINST TRANSPLANT REJECTION
     Dosage: UNK

REACTIONS (35)
  - Oropharyngeal pain [Unknown]
  - Arthralgia [Unknown]
  - Muscle spasms [Unknown]
  - Contusion [Unknown]
  - Deafness [Unknown]
  - Hypertension [Unknown]
  - Peripheral swelling [Unknown]
  - Malaise [Unknown]
  - Tremor [Unknown]
  - Myalgia [Unknown]
  - Headache [Unknown]
  - Confusional state [Unknown]
  - Pharyngeal oedema [Unknown]
  - Blood triglycerides increased [Unknown]
  - Pollakiuria [Unknown]
  - Pain in extremity [Unknown]
  - Mental status changes [Unknown]
  - Disturbance in attention [Unknown]
  - Rash [Unknown]
  - Throat irritation [Unknown]
  - Blood cholesterol increased [Unknown]
  - Heart rate irregular [Unknown]
  - Mood altered [Unknown]
  - Lymphoma [Unknown]
  - Hunger [Unknown]
  - Pruritus [Unknown]
  - Swelling face [Unknown]
  - Encephalitis [Unknown]
  - Drug intolerance [Unknown]
  - Insomnia [Unknown]
  - Urine analysis abnormal [Unknown]
  - Night sweats [Unknown]
  - Product use issue [Unknown]
  - Chest pain [Unknown]
  - Bone pain [Unknown]
